FAERS Safety Report 12778507 (Version 3)
Quarter: 2016Q4

REPORT INFORMATION
  Report Type: Spontaneous
  Country: US (occurrence: US)
  Receive Date: 20160926
  Receipt Date: 20161117
  Transmission Date: 20170207
  Serious: Yes (Hospitalization)
  Sender: FDA-Public Use
  Company Number: US-CELGENEUS-USA-2016095418

PATIENT
  Age: 56 Year
  Sex: Male
  Weight: 74.91 kg

DRUGS (7)
  1. VITAMIN D [Concomitant]
     Active Substance: CHOLECALCIFEROL
     Indication: PLASMA CELL MYELOMA
     Route: 065
     Dates: start: 20150910
  2. REVLIMID [Suspect]
     Active Substance: LENALIDOMIDE
     Indication: PLASMA CELL MYELOMA
     Route: 048
     Dates: start: 20150817
  3. ATENOLOL. [Concomitant]
     Active Substance: ATENOLOL
     Indication: HYPERTENSION
     Route: 048
  4. REVLIMID [Suspect]
     Active Substance: LENALIDOMIDE
     Route: 048
     Dates: start: 201509
  5. ZOMETA [Concomitant]
     Active Substance: ZOLEDRONIC ACID
     Indication: PLASMA CELL MYELOMA
     Dosage: 25 MILLIGRAM
     Route: 041
     Dates: start: 20150910
  6. REVLIMID [Suspect]
     Active Substance: LENALIDOMIDE
     Dosage: 5-15MG
     Route: 048
     Dates: start: 201605
  7. REVLIMID [Suspect]
     Active Substance: LENALIDOMIDE
     Dosage: 120
     Route: 048
     Dates: start: 201608

REACTIONS (3)
  - Pneumonia [Recovered/Resolved]
  - Hepatitis toxic [Recovered/Resolved]
  - Pneumonitis [Recovered/Resolved]

NARRATIVE: CASE EVENT DATE: 20160912
